FAERS Safety Report 11873819 (Version 2)
Quarter: 2016Q1

REPORT INFORMATION
  Report Type: Spontaneous
  Country: US (occurrence: US)
  Receive Date: 20151229
  Receipt Date: 20160315
  Transmission Date: 20160526
  Serious: No
  Sender: FDA-Public Use
  Company Number: US-LUPIN PHARMACEUTICALS INC.-E2B_00004371

PATIENT
  Age: 57 Year
  Sex: Female
  Weight: 68 kg

DRUGS (5)
  1. SUPRAX [Suspect]
     Active Substance: CEFIXIME
     Route: 065
  2. SUPRAX [Suspect]
     Active Substance: CEFIXIME
     Route: 065
  3. SUPRAX [Suspect]
     Active Substance: CEFIXIME
     Indication: STAPHYLOCOCCAL INFECTION
     Route: 048
     Dates: start: 201509, end: 20151014
  4. SUPRAX [Suspect]
     Active Substance: CEFIXIME
     Route: 065
  5. SUPRAX [Suspect]
     Active Substance: CEFIXIME
     Indication: KIDNEY INFECTION
     Route: 065

REACTIONS (6)
  - Drug ineffective [Unknown]
  - Condition aggravated [Not Recovered/Not Resolved]
  - Wrong technique in product usage process [Unknown]
  - Product use issue [Unknown]
  - Pyrexia [Recovered/Resolved]
  - Drug dose omission [Unknown]

NARRATIVE: CASE EVENT DATE: 201509
